FAERS Safety Report 7051961-6 (Version None)
Quarter: 2010Q4

REPORT INFORMATION
  Report Type: 
  Country: None (occurrence: None)
  Receive Date: 20101013
  Receipt Date: 20101004
  Transmission Date: 20110411
  Serious: Yes (Other)
  Sender: FDA-Public Use
  Company Number: 2010SP052411

PATIENT
  Age: 60 Year
  Sex: Female

DRUGS (4)
  1. LORATADINE [Suspect]
     Indication: PRURITUS
     Dosage: 10 MG; QD; PO, 10 MG; QD; PO
     Route: 048
     Dates: start: 20100101
  2. LORATADINE [Suspect]
     Indication: PRURITUS
     Dosage: 10 MG; QD; PO, 10 MG; QD; PO
     Route: 048
     Dates: start: 20100301
  3. PERINDOPRIL [Concomitant]
  4. BISOPROLOL [Concomitant]

REACTIONS (1)
  - DRUG HYPERSENSITIVITY [None]
